FAERS Safety Report 7235687-1 (Version None)
Quarter: 2011Q1

REPORT INFORMATION
  Report Type: 
  Country: None (occurrence: None)
  Receive Date: 20110120
  Receipt Date: 20110113
  Transmission Date: 20110831
  Serious: Yes (Death)
  Sender: FDA-Public Use
  Company Number: US-ASTRAZENECA-2011SE02276

PATIENT
  Age: 43 Year
  Sex: Female

DRUGS (7)
  1. HYDROCODONE [Suspect]
  2. GABAPENTIN [Suspect]
  3. CLONAZEPAM [Suspect]
  4. ETHANOL [Suspect]
  5. SEROQUEL [Suspect]
     Indication: BIPOLAR DISORDER
     Route: 048
     Dates: start: 20100901
  6. FLUOXETINE [Suspect]
  7. HYDROXYZINE [Suspect]

REACTIONS (1)
  - TOXICITY TO VARIOUS AGENTS [None]
